FAERS Safety Report 14305305 (Version 2)
Quarter: 2018Q1

REPORT INFORMATION
  Report Type: Spontaneous
  Country: US (occurrence: US)
  Receive Date: 20171219
  Receipt Date: 20180126
  Transmission Date: 20180509
  Serious: Yes (Other)
  Sender: FDA-Public Use
  Company Number: US-OTSUKA-15591019

PATIENT
  Age: 61 Year
  Sex: Female
  Weight: 70.29 kg

DRUGS (4)
  1. ABILIFY [Suspect]
     Active Substance: ARIPIPRAZOLE
     Indication: THINKING ABNORMAL
  2. ABILIFY [Suspect]
     Active Substance: ARIPIPRAZOLE
     Indication: SCHIZOAFFECTIVE DISORDER
  3. ABILIFY [Suspect]
     Active Substance: ARIPIPRAZOLE
     Indication: INJURY
     Dosage: 5MG TAB BLUE COLOUR 3 AT THE SAME TIME,15MG 4-5WEEKS.INITIAL DOSE - 5MG
     Route: 048
     Dates: start: 20080801
  4. ABILIFY [Suspect]
     Active Substance: ARIPIPRAZOLE
     Indication: DEPRESSION

REACTIONS (4)
  - Feeling abnormal [Unknown]
  - Insomnia [Unknown]
  - Mania [Unknown]
  - Restlessness [Unknown]

NARRATIVE: CASE EVENT DATE: 20110307
